FAERS Safety Report 9055520 (Version 1)
Quarter: 2013Q1

REPORT INFORMATION
  Report Type: Report from Study
  Country: HU (occurrence: HU)
  Receive Date: 20130206
  Receipt Date: 20130206
  Transmission Date: 20140127
  Serious: Yes (Death)
  Sender: FDA-Public Use
  Company Number: HU-GLAXOSMITHKLINE-B0852343A

PATIENT
  Age: 68 Year
  Sex: Female

DRUGS (4)
  1. TYVERB [Suspect]
     Indication: BREAST CANCER
     Dosage: 1TAB FIVE TIMES PER DAY
     Route: 065
     Dates: start: 201207, end: 20121130
  2. XELODA [Suspect]
     Indication: BREAST CANCER
     Dosage: 2TAB TWICE PER DAY
     Route: 065
     Dates: start: 201207, end: 20121130
  3. BONDRONAT [Concomitant]
     Indication: METASTASES TO BONE
     Dosage: 50MG PER DAY
     Dates: start: 2012, end: 20121130
  4. MEGESTROL ACETATE [Concomitant]
     Indication: ENDOCRINE DISORDER
     Dosage: 160MG PER DAY
     Dates: start: 2012, end: 20121130

REACTIONS (3)
  - Death [Fatal]
  - Diarrhoea [Recovered/Resolved]
  - Nodule [Not Recovered/Not Resolved]
